FAERS Safety Report 6069056-7 (Version None)
Quarter: 2009Q1

REPORT INFORMATION
  Report Type: 
  Country: None (occurrence: None)
  Receive Date: 20090206
  Receipt Date: 20090121
  Transmission Date: 20090719
  Serious: Yes (Other)
  Sender: FDA-Public Use
  Company Number: JP-ROCHE-610896

PATIENT
  Age: 5 Year
  Sex: Male

DRUGS (2)
  1. CELLCEPT [Suspect]
     Indication: PROPHYLAXIS AGAINST GRAFT VERSUS HOST DISEASE
     Route: 048
  2. TACROLIMUS [Concomitant]
     Dosage: DOSE FORM: ORAL FORMULATION (NOS)
     Route: 048

REACTIONS (2)
  - INTERSTITIAL LUNG DISEASE [None]
  - THROMBOTIC MICROANGIOPATHY [None]
